FAERS Safety Report 26131506 (Version 1)
Quarter: 2025Q4

REPORT INFORMATION
  Report Type: Spontaneous
  Country: US (occurrence: None)
  Receive Date: 20251208
  Receipt Date: 20251208
  Transmission Date: 20260117
  Serious: Yes (Hospitalization)
  Sender: FDA-CTU
  Company Number: None

PATIENT
  Age: 73 Year
  Sex: Female

DRUGS (1)
  1. LENALIDOMIDE [Suspect]
     Active Substance: LENALIDOMIDE
     Indication: Plasma cell myeloma
     Dosage: OTHER FREQUENCY : 21 ON, 7 OFF;

REACTIONS (8)
  - Hypoaesthesia [None]
  - Contusion [None]
  - Pain [None]
  - Gait disturbance [None]
  - Dry mouth [None]
  - Tooth extraction [None]
  - Hip fracture [None]
  - Spinal fracture [None]
